FAERS Safety Report 23671353 (Version 1)
Quarter: 2024Q1

REPORT INFORMATION
  Report Type: Spontaneous
  Country: PL (occurrence: PL)
  Receive Date: 20240326
  Receipt Date: 20240326
  Transmission Date: 20240410
  Serious: Yes (Other)
  Sender: FDA-Public Use
  Company Number: PL-SAMSUNG BIOEPIS-SB-2024-08704

PATIENT
  Age: 15 Year
  Sex: Male

DRUGS (1)
  1. ETANERCEPT [Suspect]
     Active Substance: ETANERCEPT
     Indication: Crohn^s disease
     Route: 065

REACTIONS (1)
  - Nephropathy toxic [Not Recovered/Not Resolved]
